FAERS Safety Report 11230693 (Version 1)
Quarter: 2015Q3

REPORT INFORMATION
  Report Type: Spontaneous
  Country: US (occurrence: US)
  Receive Date: 20150701
  Receipt Date: 20150701
  Transmission Date: 20151125
  Serious: No
  Sender: FDA-Public Use
  Company Number: US-PFIZER INC-2015212677

PATIENT
  Sex: Female

DRUGS (3)
  1. XALATAN [Suspect]
     Active Substance: LATANOPROST
     Dosage: UNK
  2. TRAVATAN Z [Suspect]
     Active Substance: TRAVOPROST
     Dosage: UNK
  3. COSOPT [Suspect]
     Active Substance: DORZOLAMIDE HYDROCHLORIDE\TIMOLOL MALEATE
     Dosage: UNK

REACTIONS (4)
  - Eye irritation [Unknown]
  - Eye pain [Unknown]
  - Dry skin [Unknown]
  - Erythema [Unknown]
